FAERS Safety Report 14001399 (Version 1)
Quarter: 2017Q3

REPORT INFORMATION
  Report Type: Spontaneous
  Country: US (occurrence: US)
  Receive Date: 20170922
  Receipt Date: 20170922
  Transmission Date: 20171128
  Serious: Yes (Hospitalization, Other)
  Sender: FDA-Public Use
  Company Number: US-ELI_LILLY_AND_COMPANY-US201709004227

PATIENT
  Sex: Female

DRUGS (9)
  1. BUTRANS [Concomitant]
     Active Substance: BUPRENORPHINE
     Dosage: 5 UG, OTHER
     Route: 062
  2. PROZAC [Suspect]
     Active Substance: FLUOXETINE HYDROCHLORIDE
     Indication: ANXIETY DISORDER
     Dosage: 40 MG, DAILY
     Route: 065
     Dates: start: 201705
  3. IBUPROFEN. [Suspect]
     Active Substance: IBUPROFEN
     Indication: PRODUCT USED FOR UNKNOWN INDICATION
     Dosage: UNK, UNKNOWN
     Route: 065
  4. HYDROCODONE                        /00060002/ [Concomitant]
     Active Substance: HYDROCODONE
     Indication: PAIN
     Dosage: 10 MG, TID
  5. ZANAFLEX [Concomitant]
     Active Substance: TIZANIDINE HYDROCHLORIDE
     Dosage: 4 MG, TID
  6. PROZAC [Suspect]
     Active Substance: FLUOXETINE HYDROCHLORIDE
     Dosage: UNK, UNKNOWN
     Route: 065
  7. SYNTHROID [Concomitant]
     Active Substance: LEVOTHYROXINE SODIUM
     Dosage: 25 UG, DAILY
  8. CLONAZEPAM. [Concomitant]
     Active Substance: CLONAZEPAM
     Dosage: 1 MG, BID
  9. BUTRANS [Concomitant]
     Active Substance: BUPRENORPHINE
     Indication: PAIN
     Dosage: 10 UG, WEEKLY (1/W)
     Route: 062

REACTIONS (12)
  - Irritability [Unknown]
  - Feeling abnormal [Unknown]
  - Contusion [Unknown]
  - Withdrawal syndrome [Unknown]
  - Blood pressure increased [Unknown]
  - Anxiety [Unknown]
  - Menopausal disorder [Unknown]
  - Bipolar disorder [Unknown]
  - Serotonin syndrome [Unknown]
  - Constipation [Unknown]
  - Gastrointestinal disorder [Unknown]
  - Anger [Unknown]
